FAERS Safety Report 4852803-7 (Version None)
Quarter: 2005Q4

REPORT INFORMATION
  Report Type: 
  Country: None (occurrence: None)
  Receive Date: 20051212
  Receipt Date: 20051212
  Transmission Date: 20060501
  Serious: Yes (Hospitalization)
  Sender: FDA-Public Use
  Company Number: None

PATIENT
  Age: 49 Year
  Sex: Female
  Weight: 79.5 kg

DRUGS (2)
  1. ETODOLAC [Suspect]
     Indication: ARTHRITIS
     Dosage: 400 MG BID PO
     Route: 048
  2. NAPROXEN [Suspect]
     Indication: ARTHRITIS
     Dosage: 500 MG TID PO
     Route: 048

REACTIONS (2)
  - GASTROINTESTINAL DISORDER [None]
  - UPPER GASTROINTESTINAL HAEMORRHAGE [None]
